FAERS Safety Report 21027456 (Version 1)
Quarter: 2022Q2

REPORT INFORMATION
  Report Type: Spontaneous
  Country: US (occurrence: US)
  Receive Date: 20220630
  Receipt Date: 20220630
  Transmission Date: 20220721
  Serious: No
  Sender: FDA-Public Use
  Company Number: US-009507513-2206USA008617

PATIENT
  Sex: Male

DRUGS (9)
  1. PRINIVIL [Suspect]
     Active Substance: LISINOPRIL
     Dosage: UNK
  2. METFORMIN [Concomitant]
     Active Substance: METFORMIN HYDROCHLORIDE
  3. OMEPRAZOLE [Concomitant]
     Active Substance: OMEPRAZOLE
  4. HYDROCORTISONE [Concomitant]
     Active Substance: HYDROCORTISONE
  5. ALEVE [Concomitant]
     Active Substance: NAPROXEN SODIUM
  6. VITAMINS [Concomitant]
     Active Substance: VITAMINS
  7. SILDENAFIL CITRATE [Concomitant]
     Active Substance: SILDENAFIL CITRATE
  8. NEOMYCIN;POLYMYXIN [Concomitant]
     Dosage: 4 GTT DROPS, TID
  9. LIPITOR [Concomitant]
     Active Substance: ATORVASTATIN CALCIUM
     Dosage: 1 DOSAGE FORM, QD

REACTIONS (2)
  - Cough [Unknown]
  - Drug hypersensitivity [Unknown]
